FAERS Safety Report 5904966-X (Version None)
Quarter: 2008Q3

REPORT INFORMATION
  Report Type: 
  Country: None (occurrence: None)
  Receive Date: 20080909
  Receipt Date: 20080423
  Transmission Date: 20090109
  Serious: Yes (Hospitalization, Other)
  Sender: FDA-Public Use
  Company Number: 163-20785-08041771

PATIENT
  Age: 52 Year
  Sex: Female

DRUGS (7)
  1. THALOMID [Suspect]
     Indication: MULTIPLE MYELOMA
     Dosage: 200 MG, 1 IN 1 D, ORAL
     Route: 048
     Dates: start: 20080206, end: 20080201
  2. AMIODARONE HCL [Concomitant]
  3. CELEXA [Concomitant]
  4. DEXAMETHASONE TAB [Concomitant]
  5. PRILOSEC [Concomitant]
  6. TRAMADOL HCL [Concomitant]
  7. COUMADIN [Concomitant]

REACTIONS (2)
  - DEEP VEIN THROMBOSIS [None]
  - PULMONARY EMBOLISM [None]
